FAERS Safety Report 7408689-X (Version None)
Quarter: 2011Q2

REPORT INFORMATION
  Report Type: 
  Country: None (occurrence: None)
  Receive Date: 20110404
  Receipt Date: 20110319
  Transmission Date: 20111010
  Serious: Yes (Hospitalization)
  Sender: FDA-Public Use
  Company Number: AUR-APL-2011-01070

PATIENT
  Age: 71 Year
  Sex: Male
  Weight: 83.9 kg

DRUGS (18)
  1. VITAMIN B-12 [Concomitant]
  2. COLECALCIFEROL [Concomitant]
  3. AMIODARONE [Concomitant]
  4. METHIMAZOLE [Suspect]
     Dosage: ORAL
     Route: 048
     Dates: start: 20110204
  5. COREG [Concomitant]
  6. PRINIVIL [Concomitant]
  7. LANTUS [Concomitant]
  8. FLOMAX [Concomitant]
  9. LANOXIN [Concomitant]
  10. SIMVASTATIN [Suspect]
     Dosage: ORAL
     Route: 048
     Dates: start: 20050429
  11. LASIX [Concomitant]
  12. ASPIRIN [Concomitant]
  13. NOVOLOG [Concomitant]
  14. EPLERENONE [Suspect]
     Indication: CARDIAC FAILURE CONGESTIVE
     Dosage: 25MG-QOD-ORAL
     Route: 048
     Dates: start: 20100915
  15. AVELOX [Concomitant]
  16. PREDNISONE [Concomitant]
  17. LIRAGLUTIDE [Concomitant]
  18. WARFARIN [Concomitant]

REACTIONS (10)
  - MUSCULOSKELETAL PAIN [None]
  - HYPERTHYROIDISM [None]
  - BRONCHIECTASIS [None]
  - URINE ANALYSIS ABNORMAL [None]
  - CHOLECYSTITIS [None]
  - LYMPHADENOPATHY [None]
  - ASTHENIA [None]
  - CHOLELITHIASIS [None]
  - ATRIAL FLUTTER [None]
  - URINARY RETENTION [None]
